FAERS Safety Report 18320333 (Version 2)
Quarter: 2020Q4

REPORT INFORMATION
  Report Type: Spontaneous
  Country: JP (occurrence: JP)
  Receive Date: 20200929
  Receipt Date: 20201027
  Transmission Date: 20210113
  Serious: Yes (Other)
  Sender: FDA-Public Use
  Company Number: JP-UCBSA-2020038681

PATIENT
  Age: 28 Year
  Sex: Male

DRUGS (5)
  1. E KEPPRA [Suspect]
     Active Substance: LEVETIRACETAM
     Dosage: 400 MILLIGRAM, DAILY
     Route: 048
     Dates: start: 201602, end: 2016
  2. E KEPPRA [Suspect]
     Active Substance: LEVETIRACETAM
     Dosage: 500 MILLIGRAM, DAILY
     Route: 048
     Dates: start: 201604, end: 2018
  3. E KEPPRA [Suspect]
     Active Substance: LEVETIRACETAM
     Dosage: 1000 MILLIGRAM, DAILY
     Route: 048
     Dates: start: 201807, end: 2018
  4. E KEPPRA [Suspect]
     Active Substance: LEVETIRACETAM
     Indication: EPILEPSY
     Dosage: 400 MILLIGRAM, DAILY
     Route: 048
     Dates: start: 201512
  5. E KEPPRA [Suspect]
     Active Substance: LEVETIRACETAM
     Dosage: 300 MILLIGRAM, DAILY
     Route: 048
     Dates: start: 201601, end: 2016

REACTIONS (6)
  - Obsessive-compulsive disorder [Recovered/Resolved]
  - Therapeutic product effect incomplete [Unknown]
  - Seizure [Recovered/Resolved]
  - Irritability [Recovered/Resolved]
  - Panic reaction [Recovered/Resolved]
  - Hyperacusis [Unknown]

NARRATIVE: CASE EVENT DATE: 201601
